FAERS Safety Report 17876683 (Version 1)
Quarter: 2020Q2

REPORT INFORMATION
  Report Type: Spontaneous
  Country: US (occurrence: US)
  Receive Date: 20200609
  Receipt Date: 20200609
  Transmission Date: 20200714
  Serious: No
  Sender: FDA-Public Use
  Company Number: US-SA-2020SA141696

PATIENT

DRUGS (5)
  1. EUCERIN ECZEMA RELIEF [Concomitant]
  2. METHOTREXATE. [Concomitant]
     Active Substance: METHOTREXATE
  3. DUPIXENT [Suspect]
     Active Substance: DUPILUMAB
     Dosage: UNK
  4. DUPIXENT [Suspect]
     Active Substance: DUPILUMAB
     Dosage: UNK
     Dates: start: 202005
  5. CETAPHIL PRO ECZEMA [Concomitant]

REACTIONS (2)
  - Dry skin [Unknown]
  - Erythema [Unknown]
